FAERS Safety Report 7399326-1 (Version None)
Quarter: 2011Q2

REPORT INFORMATION
  Report Type: 
  Country: None (occurrence: None)
  Receive Date: 20110407
  Receipt Date: 20110401
  Transmission Date: 20111010
  Serious: Yes (Hospitalization, Other)
  Sender: FDA-Public Use
  Company Number: SE-PURDUE-GBR-2011-0008016

PATIENT
  Age: 77 Year
  Sex: Female

DRUGS (1)
  1. DOLCONTIN [Suspect]
     Indication: PRODUCT USED FOR UNKNOWN INDICATION
     Dosage: 200 MG, BID
     Route: 048
     Dates: start: 20110301

REACTIONS (10)
  - SLEEP DISORDER [None]
  - INCORRECT DOSE ADMINISTERED [None]
  - OVERDOSE [None]
  - PRURITUS [None]
  - FEELING ABNORMAL [None]
  - DIZZINESS [None]
  - INSOMNIA [None]
  - BLOOD PRESSURE FLUCTUATION [None]
  - HALLUCINATION [None]
  - DRY MOUTH [None]
